FAERS Safety Report 14690171 (Version 1)
Quarter: 2018Q1

REPORT INFORMATION
  Report Type: Spontaneous
  Country: HU (occurrence: HU)
  Receive Date: 20180328
  Receipt Date: 20180328
  Transmission Date: 20180509
  Serious: Yes (Hospitalization, Other)
  Sender: FDA-Public Use
  Company Number: HU-AMGEN-HUNSP2018039333

PATIENT
  Age: 37 Year
  Sex: Female

DRUGS (1)
  1. BLINCYTO [Suspect]
     Active Substance: BLINATUMOMAB
     Indication: PRODUCT USED FOR UNKNOWN INDICATION
     Dosage: UNK
     Route: 065
     Dates: start: 2017

REACTIONS (9)
  - Disease progression [Unknown]
  - Fatigue [Unknown]
  - Intention tremor [Unknown]
  - Lymphopenia [Unknown]
  - Dysarthria [Unknown]
  - Neutropenia [Unknown]
  - Staphylococcal infection [Unknown]
  - Thrombosis in device [Unknown]
  - Resting tremor [Unknown]

NARRATIVE: CASE EVENT DATE: 20180103
